FAERS Safety Report 23625314 (Version 2)
Quarter: 2024Q3

REPORT INFORMATION
  Report Type: Spontaneous
  Country: US (occurrence: US)
  Receive Date: 20240313
  Receipt Date: 20240916
  Transmission Date: 20241016
  Serious: Yes (Other)
  Sender: ENDO
  Company Number: US-ENDO PHARMACEUTICALS INC-2023-005325

PATIENT
  Sex: Male

DRUGS (9)
  1. HYDROCODONE BITARTRATE AND ACETAMINOPHEN [Suspect]
     Active Substance: ACETAMINOPHEN\HYDROCODONE BITARTRATE
     Indication: Thermal burn
     Dosage: UNK UNKNOWN, UNKNOWN
     Route: 065
  2. ACETAMINOPHEN\OXYCODONE HYDROCHLORIDE [Suspect]
     Active Substance: ACETAMINOPHEN\OXYCODONE HYDROCHLORIDE
     Indication: Thermal burn
     Dosage: UNK UNKNOWN, UNKNOWN
     Route: 065
  3. DILAUDID [Suspect]
     Active Substance: HYDROMORPHONE HYDROCHLORIDE
     Indication: Thermal burn
     Dosage: UNK UNKNOWN, UNKNOWN
     Route: 065
  4. FENTANYL [Suspect]
     Active Substance: FENTANYL\FENTANYL CITRATE
     Indication: Thermal burn
     Dosage: UNK UNKNOWN, UNKNOWN
     Route: 065
  5. HYDROCODONE [Suspect]
     Active Substance: HYDROCODONE
     Indication: Thermal burn
     Dosage: UNK UNKNOWN, UNKNOWN
     Route: 065
  6. METHADONE HYDROCHLORIDE [Suspect]
     Active Substance: METHADONE HYDROCHLORIDE
     Indication: Thermal burn
     Dosage: UNK UNKNOWN, UNKNOWN
     Route: 065
  7. METHADONE HYDROCHLORIDE [Suspect]
     Active Substance: METHADONE HYDROCHLORIDE
     Indication: Thermal burn
     Dosage: UNK UNKNOWN, UNKNOWN
     Route: 065
  8. METHADONE [Suspect]
     Active Substance: METHADONE HYDROCHLORIDE
     Indication: Thermal burn
     Dosage: UNK UNKNOWN, UNKNOWN
     Route: 065
  9. HEROIN [Suspect]
     Active Substance: DIAMORPHINE
     Indication: Product used for unknown indication
     Dosage: UNK UNKNOWN, UNKNOWN
     Route: 065

REACTIONS (1)
  - Dependence [Unknown]
